FAERS Safety Report 5016297-3 (Version None)
Quarter: 2006Q2

REPORT INFORMATION
  Report Type: 
  Country: None (occurrence: None)
  Receive Date: 20060424
  Receipt Date: 20050506
  Transmission Date: 20061013
  Serious: Yes (Other)
  Sender: FDA-Public Use
  Company Number: 1781-157-3

PATIENT
  Age: 38 Year
  Sex: Female
  Weight: 59.8748 kg

DRUGS (1)
  1. DEXFERRUM [Suspect]
     Indication: ANAEMIA
     Dosage: 100 MG IV Q WEEK
     Route: 042
     Dates: start: 20050429, end: 20050506

REACTIONS (3)
  - BLOOD PRESSURE IMMEASURABLE [None]
  - FLUSHING [None]
  - SYNCOPE [None]
